FAERS Safety Report 23444743 (Version 1)
Quarter: 2024Q1

REPORT INFORMATION
  Report Type: Spontaneous
  Country: CN (occurrence: CN)
  Receive Date: 20240125
  Receipt Date: 20240125
  Transmission Date: 20240410
  Serious: Yes (Hospitalization)
  Sender: FDA-Public Use
  Company Number: CN-KYOWAKIRIN-2024KK001177

PATIENT

DRUGS (5)
  1. TOREMIFENE [Suspect]
     Active Substance: TOREMIFENE
     Indication: Breast cancer
     Dosage: 60 MG, QD
     Route: 048
     Dates: start: 20230731, end: 20231128
  2. TOREMIFENE [Suspect]
     Active Substance: TOREMIFENE
     Dosage: 60 MG, QD  (60 MG,1 IN 1 D)
     Route: 048
     Dates: start: 202311
  3. TRASTUZUMAB [Suspect]
     Active Substance: TRASTUZUMAB
     Indication: Breast cancer
     Dosage: 520 MG, 1X/3 WEEKS (INTRAVENOUS DRIP) (ADMINISTERED ONCE WITHIN 21 DAYS)
     Route: 042
     Dates: start: 20230731, end: 20230731
  4. TRASTUZUMAB [Suspect]
     Active Substance: TRASTUZUMAB
     Dosage: 420 MG (INTRAVENOUS DRIP)
     Route: 042
     Dates: start: 20231103, end: 20231103
  5. ABEMACICLIB [Suspect]
     Active Substance: ABEMACICLIB
     Indication: Breast cancer
     Dosage: 200 MG, QD (100 MG,1 IN 12 HR)
     Route: 048
     Dates: start: 20230731, end: 2023

REACTIONS (1)
  - Platelet count decreased [Recovering/Resolving]

NARRATIVE: CASE EVENT DATE: 20230101
